FAERS Safety Report 15462952 (Version 3)
Quarter: 2019Q1

REPORT INFORMATION
  Report Type: Spontaneous
  Country: US (occurrence: US)
  Receive Date: 20181004
  Receipt Date: 20190104
  Transmission Date: 20190417
  Serious: No
  Sender: FDA-Public Use
  Company Number: US-PFIZER INC-2018397854

PATIENT
  Age: 68 Year
  Sex: Female
  Weight: 95.25 kg

DRUGS (2)
  1. CELEBREX [Suspect]
     Active Substance: CELECOXIB
     Indication: SPINAL OSTEOARTHRITIS
     Dosage: 200 MG, 1X/DAY, (EVERY MORNING)
     Route: 048
  2. CELEBREX [Suspect]
     Active Substance: CELECOXIB
     Indication: ARTHRALGIA
     Dosage: UNK, TWICE PER DAY
     Route: 048

REACTIONS (2)
  - Drug ineffective [Unknown]
  - Intentional product misuse [Unknown]
